FAERS Safety Report 16302646 (Version 1)
Quarter: 2019Q2

REPORT INFORMATION
  Report Type: Spontaneous
  Country: US (occurrence: US)
  Receive Date: 20190513
  Receipt Date: 20190513
  Transmission Date: 20190711
  Serious: No
  Sender: FDA-Public Use
  Company Number: US-009507513-1905USA005044

PATIENT
  Age: 22 Year
  Sex: Female
  Weight: 58.5 kg

DRUGS (2)
  1. NUVARING [Suspect]
     Active Substance: ETHINYL ESTRADIOL\ETONOGESTREL
     Indication: CONTRACEPTION
     Dosage: 1 RING INSERTED FOR 3 WEEKS THEN REMOVE FOR 7 DAYS
     Route: 067
     Dates: start: 201808, end: 201812
  2. NUVARING [Suspect]
     Active Substance: ETHINYL ESTRADIOL\ETONOGESTREL
     Indication: HAEMOSTASIS
     Dosage: 1 RING INSERTED FOR 3 WEEKS THEN REMOVE FOR 7 DAYS
     Route: 067
     Dates: start: 201903, end: 20190509

REACTIONS (6)
  - Product quality issue [Unknown]
  - Pain [Recovered/Resolved]
  - Mental disorder [Unknown]
  - Product use in unapproved indication [Unknown]
  - Incorrect product administration duration [Unknown]
  - Device expulsion [Recovered/Resolved]

NARRATIVE: CASE EVENT DATE: 201808
